FAERS Safety Report 8348470-0 (Version None)
Quarter: 2012Q2

REPORT INFORMATION
  Report Type: 
  Country: None (occurrence: None)
  Receive Date: 20120509
  Receipt Date: 20120502
  Transmission Date: 20120825
  Serious: Yes (Hospitalization)
  Sender: FDA-Public Use
  Company Number: NZ-AMGEN-NZLSP2012028745

PATIENT
  Sex: Male

DRUGS (6)
  1. DOXORUBICIN HCL [Concomitant]
  2. NEULASTIM [Suspect]
     Indication: NEUTROPENIA
  3. VINCRISTINE [Concomitant]
  4. PREDNISOLONE [Concomitant]
  5. CYCLOPHOSPHAMIDE [Concomitant]
  6. MABTHERA [Concomitant]

REACTIONS (2)
  - DRUG INEFFECTIVE [None]
  - FEBRILE NEUTROPENIA [None]
